FAERS Safety Report 12320086 (Version 1)
Quarter: 2016Q2

REPORT INFORMATION
  Report Type: Spontaneous
  Country: GB (occurrence: GB)
  Receive Date: 20160429
  Receipt Date: 20160429
  Transmission Date: 20160815
  Serious: Yes (Hospitalization)
  Sender: FDA-Public Use
  Company Number: GB-VIIV HEALTHCARE LIMITED-GB2016GSK059869

PATIENT
  Sex: Female

DRUGS (1)
  1. CELSENTRI [Suspect]
     Active Substance: MARAVIROC

REACTIONS (1)
  - Respiratory disorder [Unknown]
